FAERS Safety Report 4853936-1 (Version None)
Quarter: 2005Q4

REPORT INFORMATION
  Report Type: 
  Country: None (occurrence: None)
  Receive Date: 20051214
  Receipt Date: 20051208
  Transmission Date: 20060501
  Serious: Yes (Other)
  Sender: FDA-Public Use
  Company Number: US-MERCK-0512USA01346

PATIENT
  Age: 38 Year
  Sex: Female
  Weight: 92 kg

DRUGS (6)
  1. ZETIA [Suspect]
     Indication: HYPERLIPIDAEMIA
     Route: 048
     Dates: start: 20051203, end: 20051207
  2. ZETIA [Suspect]
     Indication: HYPERCHOLESTEROLAEMIA
     Route: 048
     Dates: start: 20051203, end: 20051207
  3. TENORETIC 100 [Concomitant]
     Indication: HYPERTENSION
     Route: 048
  4. AVANDAMET [Concomitant]
     Indication: DIABETES MELLITUS
     Route: 048
  5. UNIVASC [Concomitant]
     Indication: HYPERTENSION
     Route: 048
  6. MEVACOR [Concomitant]
     Indication: BLOOD CHOLESTEROL INCREASED
     Route: 048

REACTIONS (2)
  - RASH ERYTHEMATOUS [None]
  - RASH PRURITIC [None]
